FAERS Safety Report 18992044 (Version 1)
Quarter: 2021Q1

REPORT INFORMATION
  Report Type: Spontaneous
  Country: JP (occurrence: JP)
  Receive Date: 20210310
  Receipt Date: 20210310
  Transmission Date: 20210420
  Serious: Yes (Death, Other)
  Sender: FDA-Public Use
  Company Number: JP-PFIZER INC-2021235947

PATIENT
  Age: 78 Year
  Sex: Female

DRUGS (1)
  1. IBRANCE [Suspect]
     Active Substance: PALBOCICLIB
     Dosage: 125 MG, DAILY
     Route: 048
     Dates: start: 20210210, end: 20210224

REACTIONS (4)
  - Febrile neutropenia [Fatal]
  - Disseminated intravascular coagulation [Unknown]
  - Blood pressure decreased [Unknown]
  - Shock [Unknown]

NARRATIVE: CASE EVENT DATE: 20210224
